FAERS Safety Report 9507788 (Version 3)
Quarter: 2013Q4

REPORT INFORMATION
  Report Type: Spontaneous
  Country: US (occurrence: US)
  Receive Date: 20130909
  Receipt Date: 20131001
  Transmission Date: 20140711
  Serious: Yes (Other)
  Sender: FDA-Public Use
  Company Number: US-BAYER-2013-108378

PATIENT
  Age: 28 Year
  Sex: Female
  Weight: 81.63 kg

DRUGS (1)
  1. MIRENA [Suspect]
     Indication: CONTRACEPTION
     Dosage: UNK
     Route: 015
     Dates: start: 20081105

REACTIONS (3)
  - Embedded device [Not Recovered/Not Resolved]
  - Device difficult to use [None]
  - Device difficult to use [None]
